FAERS Safety Report 15014170 (Version 1)
Quarter: 2018Q2

REPORT INFORMATION
  Report Type: Spontaneous
  Country: US (occurrence: US)
  Receive Date: 20180615
  Receipt Date: 20180615
  Transmission Date: 20180711
  Serious: Yes (Hospitalization)
  Sender: FDA-Public Use
  Company Number: US-BEH-2018091492

PATIENT
  Age: 75 Year
  Sex: Female
  Weight: 103.86 kg

DRUGS (29)
  1. SINGULAIR [Concomitant]
     Active Substance: MONTELUKAST SODIUM
  2. XANAX [Concomitant]
     Active Substance: ALPRAZOLAM
  3. PROMETHAZINE - CODEINE             /01129901/ [Concomitant]
  4. SODIUM CHLORIDE. [Concomitant]
     Active Substance: SODIUM CHLORIDE
  5. EPINEPHRINE. [Concomitant]
     Active Substance: EPINEPHRINE
  6. CETIRIZINE [Concomitant]
     Active Substance: CETIRIZINE HYDROCHLORIDE
  7. DIPHENHYDRAMINE. [Concomitant]
     Active Substance: DIPHENHYDRAMINE
  8. GAMMAGARD [Concomitant]
     Active Substance: HUMAN IMMUNOGLOBULIN G
  9. COUMADIN [Concomitant]
     Active Substance: WARFARIN SODIUM
  10. SPIRONOLACTONE. [Concomitant]
     Active Substance: SPIRONOLACTONE
  11. FLUOXETINE [Concomitant]
     Active Substance: FLUOXETINE HYDROCHLORIDE
  12. ZEMAIRA [Suspect]
     Active Substance: .ALPHA.1-PROTEINASE INHIBITOR HUMAN
     Dosage: UNK
     Route: 042
  13. CARIMUNE NF [Concomitant]
     Active Substance: HUMAN IMMUNOGLOBULIN G
     Indication: PRODUCT USED FOR UNKNOWN INDICATION
  14. ALPRAZOLAM. [Concomitant]
     Active Substance: ALPRAZOLAM
  15. KLOR-CON [Concomitant]
     Active Substance: POTASSIUM CHLORIDE
  16. PREDNISONE. [Concomitant]
     Active Substance: PREDNISONE
  17. PRAVASTATIN. [Concomitant]
     Active Substance: PRAVASTATIN
  18. BUDESONIDE. [Concomitant]
     Active Substance: BUDESONIDE
  19. SPIRIVA [Concomitant]
     Active Substance: TIOTROPIUM BROMIDE MONOHYDRATE
  20. OXYGEN. [Concomitant]
     Active Substance: OXYGEN
  21. FUROSEMIDE. [Concomitant]
     Active Substance: FUROSEMIDE
  22. GUAIFENESIN. [Concomitant]
     Active Substance: GUAIFENESIN
  23. DILTIAZEM. [Concomitant]
     Active Substance: DILTIAZEM
  24. MAGNESIUM [Concomitant]
     Active Substance: MAGNESIUM
  25. ZEMAIRA [Suspect]
     Active Substance: .ALPHA.1-PROTEINASE INHIBITOR HUMAN
     Indication: ALPHA-1 ANTI-TRYPSIN DEFICIENCY
     Dosage: 60 MG/KG, UNK
     Route: 042
     Dates: start: 20140630
  26. ACETAMINOPHEN. [Concomitant]
     Active Substance: ACETAMINOPHEN
  27. STERILE WATER [Concomitant]
     Active Substance: WATER
  28. LEVOTHYROXINE. [Concomitant]
     Active Substance: LEVOTHYROXINE
  29. BROVANA [Concomitant]
     Active Substance: ARFORMOTEROL TARTRATE

REACTIONS (2)
  - Abdominal pain [Unknown]
  - International normalised ratio increased [Unknown]

NARRATIVE: CASE EVENT DATE: 20180606
